FAERS Safety Report 11171953 (Version 1)
Quarter: 2015Q2

REPORT INFORMATION
  Report Type: Spontaneous
  Country: US (occurrence: US)
  Receive Date: 20150608
  Receipt Date: 20150608
  Transmission Date: 20150821
  Serious: No
  Sender: FDA-Public Use
  Company Number: US-TARO-2014P1004217

PATIENT
  Age: 6 Year
  Sex: Male
  Weight: 21.77 kg

DRUGS (2)
  1. CHILDRENS CETIRIZINE HYDROCHLORIDE SUGAR FREE GRAPE [Suspect]
     Active Substance: CETIRIZINE HYDROCHLORIDE
     Indication: SEASONAL ALLERGY
     Route: 048
     Dates: start: 20140504, end: 201405
  2. DAILY VITAMIN [Concomitant]
     Active Substance: VITAMINS
     Dosage: QD

REACTIONS (3)
  - Product substitution issue [Recovered/Resolved]
  - Hypersensitivity [Recovered/Resolved]
  - Drug ineffective [Recovered/Resolved]

NARRATIVE: CASE EVENT DATE: 201405
